FAERS Safety Report 8986372 (Version 5)
Quarter: 2013Q2

REPORT INFORMATION
  Report Type: Spontaneous
  Country: MY (occurrence: MY)
  Receive Date: 20121227
  Receipt Date: 20130502
  Transmission Date: 20140414
  Serious: Yes (Death, Hospitalization, Other)
  Sender: FDA-Public Use
  Company Number: MY-SANOFI-AVENTIS-2012SA091634

PATIENT
  Age: 31 Year
  Sex: Female
  Weight: 60 kg

DRUGS (7)
  1. ARAVA [Suspect]
     Indication: RHEUMATOID ARTHRITIS
     Route: 048
     Dates: start: 20100824, end: 20121211
  2. HUMIRA [Suspect]
     Indication: RHEUMATOID ARTHRITIS
     Dosage: EVERY 2 WEEKS
     Route: 058
     Dates: start: 20110329, end: 20121211
  3. MELOXICAM [Concomitant]
     Indication: RHEUMATOID ARTHRITIS
     Route: 048
     Dates: start: 20120731, end: 20121211
  4. SIMVASTATIN [Concomitant]
     Indication: DYSLIPIDAEMIA
     Route: 048
     Dates: start: 20121211, end: 20121211
  5. VITAMIN B COMPLEX WITH C [Concomitant]
     Indication: ANAEMIA
     Dosage: DOSE: 4 OD
     Route: 048
     Dates: start: 20110621
  6. FOLIC ACID [Concomitant]
     Indication: ANAEMIA
     Dosage: DOSE: 5 MG OD
     Route: 048
     Dates: start: 20110621
  7. FERROUS FUMARATE [Concomitant]
     Indication: ANAEMIA
     Dosage: DOSE: 200 MG BD
     Route: 048
     Dates: start: 20110621

REACTIONS (16)
  - Postpartum haemorrhage [Fatal]
  - Lymphopenia [Fatal]
  - Uterine atony [Fatal]
  - Stillbirth [Unknown]
  - Exposure during pregnancy [Unknown]
  - Urinary tract disorder [Unknown]
  - Hypotension [Unknown]
  - Metabolic acidosis [Unknown]
  - Renal failure acute [Unknown]
  - Sepsis [Unknown]
  - Pyrexia [Unknown]
  - Ischaemic hepatitis [Unknown]
  - Alanine aminotransferase increased [Unknown]
  - Aspartate aminotransferase increased [Unknown]
  - Jaundice cholestatic [Unknown]
  - Thrombocytopenia [Unknown]
